FAERS Safety Report 5889487-5 (Version None)
Quarter: 2008Q3

REPORT INFORMATION
  Report Type: 
  Country: None (occurrence: None)
  Receive Date: 20080919
  Receipt Date: 20080910
  Transmission Date: 20090109
  Serious: Yes (Hospitalization)
  Sender: FDA-Public Use
  Company Number: DE-ELI_LILLY_AND_COMPANY-DE200809002411

PATIENT
  Age: 73 Year
  Sex: Female

DRUGS (7)
  1. BYETTA [Suspect]
     Indication: DIABETES MELLITUS
     Dosage: 5 UG, 2/D
     Route: 058
     Dates: start: 20070701, end: 20080903
  2. TEGRETOL [Concomitant]
     Dosage: UNK, UNKNOWN
     Route: 065
  3. BISOHEXAL [Concomitant]
     Dosage: UNK, UNKNOWN
     Route: 065
  4. PRAVASTATIN [Concomitant]
     Dosage: UNK, UNKNOWN
     Route: 065
  5. ENALAPRIL MALEATE [Concomitant]
     Dosage: UNK, UNKNOWN
     Route: 065
  6. METFORMIN HCL [Concomitant]
     Dosage: UNK, UNKNOWN
     Route: 065
  7. BACLOFEN [Concomitant]
     Dosage: UNK, UNKNOWN
     Route: 065

REACTIONS (1)
  - RHABDOMYOLYSIS [None]
